FAERS Safety Report 16370708 (Version 1)
Quarter: 2019Q2

REPORT INFORMATION
  Report Type: Spontaneous
  Country: US (occurrence: US)
  Receive Date: 20190530
  Receipt Date: 20190530
  Transmission Date: 20190711
  Serious: Yes (Other)
  Sender: FDA-Public Use
  Company Number: US-AJANTA PHARMA USA INC.-2067576

PATIENT
  Age: 83 Year
  Sex: Male

DRUGS (2)
  1. TAMSULOSIN HYDROCHLORIDE. [Concomitant]
     Active Substance: TAMSULOSIN HYDROCHLORIDE
  2. ENTACAPONE (ANDA 205792) [Suspect]
     Active Substance: ENTACAPONE
     Indication: PRODUCT USED FOR UNKNOWN INDICATION

REACTIONS (2)
  - Pemphigoid [Recovering/Resolving]
  - Erythema [Unknown]
